FAERS Safety Report 9587105 (Version 1)
Quarter: 2013Q4

REPORT INFORMATION
  Report Type: Spontaneous
  Country: BE (occurrence: BE)
  Receive Date: 20131003
  Receipt Date: 20131003
  Transmission Date: 20140711
  Serious: No
  Sender: FDA-Public Use
  Company Number: BE-009507513-1310BEL000816

PATIENT
  Sex: Female

DRUGS (4)
  1. SYCREST [Suspect]
     Indication: MANIA
     Dosage: 10 MG, BID
     Route: 060
     Dates: start: 20130913
  2. SYCREST [Suspect]
     Indication: BIPOLAR I DISORDER
  3. TEMESTA [Concomitant]
     Dosage: 1 PER DAY
  4. ZYPREXA VELOTAB [Concomitant]
     Dosage: GRADUAL SWITCH TO SYCREST/ASENAPINE OVER A TIME PERIOD OF 2 WEEKS
     Dates: end: 20130927

REACTIONS (3)
  - Swollen tongue [Not Recovered/Not Resolved]
  - Glossitis [Not Recovered/Not Resolved]
  - Tongue discolouration [Not Recovered/Not Resolved]
